FAERS Safety Report 22147141 (Version 1)
Quarter: 2023Q1

REPORT INFORMATION
  Report Type: Spontaneous
  Country: JP (occurrence: JP)
  Receive Date: 20230328
  Receipt Date: 20230328
  Transmission Date: 20230418
  Serious: Yes (Death, Life-Threatening, Other)
  Sender: FDA-Public Use
  Company Number: JP-ELI_LILLY_AND_COMPANY-JP202303012026

PATIENT
  Age: 75 Year
  Sex: Male
  Weight: 53 kg

DRUGS (9)
  1. ALIMTA [Suspect]
     Active Substance: PEMETREXED DISODIUM
     Indication: Pleural mesothelioma malignant
     Dosage: 600 MG, UNKNOWN
     Route: 041
     Dates: start: 20230216, end: 20230216
  2. CARBOPLATIN [Suspect]
     Active Substance: CARBOPLATIN
     Indication: Pleural mesothelioma malignant
     Dosage: 270 MG, UNKNOWN
     Route: 041
     Dates: start: 20230216, end: 20230216
  3. MASBLON [Concomitant]
     Dosage: 1 MG, DAILY
     Route: 065
     Dates: start: 20230209
  4. VITAMINS NOS [Concomitant]
     Active Substance: VITAMINS
     Dosage: 1 G, DAILY
     Route: 065
     Dates: start: 20230209, end: 20230222
  5. PREDONINE [Concomitant]
     Active Substance: PREDNISOLONE
     Dosage: 40 MG, DAILY
     Route: 065
     Dates: start: 20230109, end: 20230114
  6. PREDONINE [Concomitant]
     Active Substance: PREDNISOLONE
     Dosage: 10 MG, DAILY
     Route: 065
     Dates: start: 20230115, end: 20230208
  7. PREDONINE [Concomitant]
     Active Substance: PREDNISOLONE
     Dosage: 5 MG, DAILY
     Route: 065
     Dates: start: 20230209, end: 20230215
  8. PREDONINE [Concomitant]
     Active Substance: PREDNISOLONE
     Dosage: 20 MG, DAILY
     Route: 048
     Dates: start: 20230216, end: 20230222
  9. FOLIC ACID [Concomitant]
     Active Substance: FOLIC ACID
     Dosage: 15 MG, DAILY
     Route: 065
     Dates: start: 20230227, end: 20230303

REACTIONS (5)
  - Febrile neutropenia [Fatal]
  - Stomatitis [Fatal]
  - Platelet count decreased [Unknown]
  - Depressed level of consciousness [Unknown]
  - Off label use [Unknown]

NARRATIVE: CASE EVENT DATE: 20230216
